FAERS Safety Report 6208572-1 (Version None)
Quarter: 2009Q2

REPORT INFORMATION
  Report Type: 
  Country: None (occurrence: None)
  Receive Date: 20090522
  Receipt Date: 20090218
  Transmission Date: 20091009
  Serious: No
  Sender: FDA-Public Use
  Company Number: 8043288

PATIENT
  Age: 44 Year
  Sex: Female
  Weight: 66.8 kg

DRUGS (8)
  1. CIMZIA [Suspect]
     Indication: CROHN'S DISEASE
     Dosage: 400 MG SC
     Route: 058
     Dates: start: 20090212
  2. PENTASA [Concomitant]
  3. ZOFRAN [Concomitant]
  4. PROBIOTICA [Concomitant]
  5. HYOSCYAMINE [Concomitant]
  6. LISINOPRIL [Concomitant]
  7. HYDROCHLOROTHIAZIDE [Concomitant]
  8. CODEINE [Concomitant]

REACTIONS (5)
  - BODY TEMPERATURE INCREASED [None]
  - EYE PAIN [None]
  - FATIGUE [None]
  - HEADACHE [None]
  - NAUSEA [None]
